FAERS Safety Report 4433072-9 (Version None)
Quarter: 2004Q3

REPORT INFORMATION
  Report Type: 
  Country: None (occurrence: None)
  Receive Date: 20040823
  Receipt Date: 20040810
  Transmission Date: 20050211
  Serious: Yes (Other)
  Sender: FDA-Public Use
  Company Number: USA-2004-0014807

PATIENT
  Age: 46 Year
  Sex: Male

DRUGS (1)
  1. OXYCONTIN [Suspect]
     Indication: PAIN
     Dosage: 80 MG , QID
     Dates: start: 19980901

REACTIONS (4)
  - FACE INJURY [None]
  - FACIAL BONES FRACTURE [None]
  - POLYTRAUMATISM [None]
  - VICTIM OF CRIME [None]
